FAERS Safety Report 25089530 (Version 1)
Quarter: 2025Q1

REPORT INFORMATION
  Report Type: Other
  Country: IN (occurrence: IN)
  Receive Date: 20250318
  Receipt Date: 20250318
  Transmission Date: 20250408
  Serious: Yes (Other)
  Sender: COREPHARMA LLC
  Company Number: IN-CorePharma LLC-2173145

PATIENT
  Age: 4 Year
  Sex: Male

DRUGS (1)
  1. DICYCLOMINE HYDROCHLORIDE [Suspect]
     Active Substance: DICYCLOMINE HYDROCHLORIDE
     Indication: Abdominal pain

REACTIONS (3)
  - Hallucination, visual [Recovering/Resolving]
  - Substance-induced psychotic disorder [Recovering/Resolving]
  - Irritability [Recovering/Resolving]
